FAERS Safety Report 7528700-5 (Version None)
Quarter: 2011Q2

REPORT INFORMATION
  Report Type: 
  Country: None (occurrence: None)
  Receive Date: 20110518
  Receipt Date: 20110113
  Transmission Date: 20111010
  Serious: Yes (Other)
  Sender: FDA-Public Use
  Company Number: 1000018173

PATIENT
  Sex: Male

DRUGS (2)
  1. PITOCIN [Suspect]
  2. CERVIDIL [Suspect]
     Dosage: 10 MG (10 MG), TRANSPLACENTAL
     Route: 064
     Dates: start: 20110109, end: 20110111

REACTIONS (3)
  - PYREXIA [None]
  - FOETAL DISTRESS SYNDROME [None]
  - JAUNDICE [None]
